FAERS Safety Report 5123203-X (Version None)
Quarter: 2006Q4

REPORT INFORMATION
  Report Type: 
  Country: None (occurrence: None)
  Receive Date: 20061005
  Receipt Date: 20060929
  Transmission Date: 20070319
  Serious: Yes (Death, Hospitalization)
  Sender: FDA-Public Use
  Company Number: 028-C5013-0604827

PATIENT
  Age: 66 Year
  Sex: Female
  Weight: 83.6 kg

DRUGS (11)
  1. REVLIMID [Suspect]
     Indication: MULTIPLE MYELOMA
     Dosage: 25 MG, 1 IN 1 D, ORAL
     Route: 048
     Dates: start: 20060113, end: 20060421
  2. DEXAMETHASONE TAB [Suspect]
     Indication: MULTIPLE MYELOMA
     Dosage: ORAL
     Route: 048
     Dates: start: 20060113, end: 20060209
  3. PREDNISONE TAB [Suspect]
     Indication: MULTIPLE MYELOMA
     Dosage: 50 MG, QOD
     Dates: start: 20060201
  4. CIPRO [Concomitant]
  5. CRESTOR (ROSUVASATIN) [Concomitant]
  6. ATENOLOL [Concomitant]
  7. ESTROGEN (ESTROGEN NOS) [Concomitant]
  8. GLYBURIDE [Concomitant]
  9. ALTACE [Concomitant]
  10. LOSEC (OMPERAZOLE) [Concomitant]
  11. ASPIRIN [Concomitant]

REACTIONS (9)
  - BLOOD CREATININE INCREASED [None]
  - FEBRILE NEUTROPENIA [None]
  - HAEMORRHAGE [None]
  - PANCYTOPENIA [None]
  - PNEUMONIA [None]
  - RESPIRATORY FAILURE [None]
  - SINUSITIS [None]
  - THERAPY NON-RESPONDER [None]
  - WHEEZING [None]
